FAERS Safety Report 8737494 (Version 2)
Quarter: 2012Q4

REPORT INFORMATION
  Report Type: Report from Study
  Country: US (occurrence: US)
  Receive Date: 20120822
  Receipt Date: 20120901
  Transmission Date: 20130627
  Serious: Yes (Other)
  Sender: FDA-Public Use
  Company Number: US-009507513-1208USA002213

PATIENT

DRUGS (2)
  1. CLARITIN-D 12 HOUR [Suspect]
     Dosage: UNK
     Dates: start: 20120602, end: 20120714
  2. CLARITIN ALLERGY AND SINUS [Suspect]
     Dosage: UNK
     Dates: start: 20120602, end: 20120714

REACTIONS (2)
  - Abortion spontaneous [Recovered/Resolved]
  - Exposure during pregnancy [None]
